FAERS Safety Report 11912857 (Version 2)
Quarter: 2016Q1

REPORT INFORMATION
  Report Type: Spontaneous
  Country: US (occurrence: US)
  Receive Date: 20160113
  Receipt Date: 20160226
  Transmission Date: 20160526
  Serious: No
  Sender: FDA-Public Use
  Company Number: US-TEVA-624066USA

PATIENT

DRUGS (2)
  1. QNASL [Suspect]
     Active Substance: BECLOMETHASONE DIPROPIONATE
     Indication: NASAL CONGESTION
  2. QNASL [Suspect]
     Active Substance: BECLOMETHASONE DIPROPIONATE
     Indication: ASTHMA
     Route: 045
     Dates: start: 2013

REACTIONS (3)
  - Nasal congestion [Unknown]
  - Device use error [Unknown]
  - Headache [Unknown]
